FAERS Safety Report 13441444 (Version 1)
Quarter: 2017Q2

REPORT INFORMATION
  Report Type: Spontaneous
  Country: US (occurrence: US)
  Receive Date: 20170413
  Receipt Date: 20170413
  Transmission Date: 20170830
  Serious: No
  Sender: FDA-Public Use
  Company Number: US-BIOGEN-2017BI00386830

PATIENT
  Sex: Female

DRUGS (1)
  1. TYSABRI [Suspect]
     Active Substance: NATALIZUMAB
     Indication: MULTIPLE SCLEROSIS
     Dosage: INFUSED OVER 1 HOUR
     Route: 041
     Dates: start: 20141028

REACTIONS (9)
  - Hemianaesthesia [Unknown]
  - Headache [Unknown]
  - Rash [Unknown]
  - Photophobia [Unknown]
  - Peripheral swelling [Unknown]
  - Gait disturbance [Unknown]
  - Asthenia [Unknown]
  - Vision blurred [Unknown]
  - Vitamin D decreased [Unknown]
